FAERS Safety Report 8577978-8 (Version None)
Quarter: 2012Q3

REPORT INFORMATION
  Report Type: 
  Country: None (occurrence: None)
  Receive Date: 20120725
  Receipt Date: 20120710
  Transmission Date: 20120928
  Serious: Yes (Hospitalization)
  Sender: FDA-Public Use
  Company Number: DSM-2012-00756

PATIENT
  Age: 84 Year
  Sex: Female
  Weight: 85 kg

DRUGS (6)
  1. OLMESARTAN MEDOXOMIL/AMLODIPINE BESYLATE/HYDROCHLOROTHIAZIDE [Suspect]
     Indication: ESSENTIAL HYPERTENSION
     Dosage: 40/5/25 MG, ORAL
     Route: 048
     Dates: start: 20111115, end: 20120101
  2. INSULIN [Concomitant]
  3. NSAID/COX2 INHIBITOR (ANTIINFLAMMATORY/ANTIRHEUMATIC NON-STERIODS) [Concomitant]
  4. ORAL ANTIDIABETICS [Concomitant]
  5. ASPIRIN [Concomitant]
  6. ANTICOAGULANTS (ANTITHROMBOTIC AGENTS) [Concomitant]

REACTIONS (6)
  - DIARRHOEA [None]
  - DEHYDRATION [None]
  - HYPOTENSION [None]
  - COLITIS [None]
  - URINARY TRACT INFECTION [None]
  - STAPHYLOCOCCAL INFECTION [None]
